FAERS Safety Report 13899143 (Version 1)
Quarter: 2017Q3

REPORT INFORMATION
  Report Type: Spontaneous
  Country: US (occurrence: US)
  Receive Date: 20170823
  Receipt Date: 20170823
  Transmission Date: 20171127
  Serious: Yes (Other)
  Sender: FDA-Public Use
  Company Number: None

PATIENT
  Age: 63 Year
  Sex: Male
  Weight: 87.75 kg

DRUGS (13)
  1. METFORMIN [Concomitant]
     Active Substance: METFORMIN HYDROCHLORIDE
  2. ATORVASTATIN [Concomitant]
     Active Substance: ATORVASTATIN
  3. MELLOXICAM [Concomitant]
  4. CELEXA [Concomitant]
     Active Substance: CITALOPRAM HYDROBROMIDE
  5. SYNTHROID [Concomitant]
     Active Substance: LEVOTHYROXINE SODIUM
  6. DEPAKOTE [Concomitant]
     Active Substance: DIVALPROEX SODIUM
  7. TRICOR [Concomitant]
     Active Substance: FENOFIBRATE
  8. PROBIOTIC [Concomitant]
     Active Substance: PROBIOTICS NOS
  9. TRAMADOL. [Concomitant]
     Active Substance: TRAMADOL
  10. LION^S MANE TINCTURES [Concomitant]
  11. DEXAMETHASONE. [Suspect]
     Active Substance: DEXAMETHASONE
     Indication: BRAIN OEDEMA
  12. IBUPROFEN. [Concomitant]
     Active Substance: IBUPROFEN
  13. RIESHI [Concomitant]

REACTIONS (3)
  - Panic attack [None]
  - Abnormal behaviour [None]
  - Mental disorder [None]

NARRATIVE: CASE EVENT DATE: 20020501
